FAERS Safety Report 21144460 (Version 7)
Quarter: 2023Q2

REPORT INFORMATION
  Report Type: Spontaneous
  Country: US (occurrence: US)
  Receive Date: 20220728
  Receipt Date: 20230601
  Transmission Date: 20230721
  Serious: No
  Sender: FDA-Public Use
  Company Number: US-PFIZER INC-PV202200032151

PATIENT
  Age: 78 Year
  Sex: Female
  Weight: 71.67 kg

DRUGS (5)
  1. BOSULIF [Suspect]
     Active Substance: BOSUTINIB MONOHYDRATE
     Indication: Bone marrow disorder
     Dosage: 300 MG, DAILY
  2. BOSULIF [Suspect]
     Active Substance: BOSUTINIB MONOHYDRATE
     Dosage: 100 MG, 3X/DAY
     Route: 048
  3. BOSULIF [Suspect]
     Active Substance: BOSUTINIB MONOHYDRATE
     Dosage: 400 MG
  4. BOSULIF [Suspect]
     Active Substance: BOSUTINIB MONOHYDRATE
     Dosage: 300 MG
  5. BOSULIF [Suspect]
     Active Substance: BOSUTINIB MONOHYDRATE
     Dosage: 300 MG, 1X/DAY (EACH PILL IS 100MG AND TAKES THREE PILLS ONE TIME PER DAY BY MOUTH)
     Route: 048
     Dates: start: 202208

REACTIONS (6)
  - Off label use [Unknown]
  - Asthenia [Unknown]
  - Malaise [Unknown]
  - Alopecia [Not Recovered/Not Resolved]
  - Neoplasm progression [Unknown]
  - Feeling cold [Unknown]

NARRATIVE: CASE EVENT DATE: 20230101
